FAERS Safety Report 7618610-7 (Version None)
Quarter: 2011Q3

REPORT INFORMATION
  Report Type: 
  Country: None (occurrence: None)
  Receive Date: 20110718
  Receipt Date: 20110707
  Transmission Date: 20111222
  Serious: Yes (Death, Other)
  Sender: FDA-Public Use
  Company Number: NO-BRISTOL-MYERS SQUIBB COMPANY-15879992

PATIENT
  Age: 58 Year
  Sex: Female

DRUGS (7)
  1. CITALOPRAM HYDROBROMIDE [Suspect]
  2. ACETYLSALICYLIC ACID SRT [Suspect]
  3. SIMVASTATIN [Suspect]
     Dosage: 20 MG, UNK
  4. METFORMIN HCL [Suspect]
  5. BENDROFLUMETHIAZIDE [Suspect]
  6. AMITRIPTYLINE HCL [Suspect]
     Dosage: 25 MG, 2X PER DAY
  7. INSULIN [Suspect]

REACTIONS (3)
  - DISSEMINATED INTRAVASCULAR COAGULATION [None]
  - SEROTONIN SYNDROME [None]
  - MULTI-ORGAN FAILURE [None]
